FAERS Safety Report 9714214 (Version 1)
Quarter: 2013Q4

REPORT INFORMATION
  Report Type: Spontaneous
  Country: US (occurrence: US)
  Receive Date: 20131126
  Receipt Date: 20131126
  Transmission Date: 20140711
  Serious: No
  Sender: FDA-Public Use
  Company Number: US-GILEAD-2008-0019415

PATIENT
  Age: 90 Year
  Sex: Female
  Weight: 82.1 kg

DRUGS (9)
  1. LETAIRIS [Suspect]
     Indication: PULMONARY ARTERIAL HYPERTENSION
     Route: 048
     Dates: start: 20081202
  2. LASIX [Concomitant]
  3. DIOVAN HCT [Concomitant]
  4. HYTRIN [Concomitant]
  5. ACTOS [Concomitant]
  6. ARANESP [Concomitant]
  7. IRON [Concomitant]
  8. K-DUR [Concomitant]
  9. PROTONIX [Concomitant]

REACTIONS (4)
  - Respiratory tract congestion [Not Recovered/Not Resolved]
  - Swelling face [Not Recovered/Not Resolved]
  - Dyspnoea [Not Recovered/Not Resolved]
  - Oedema [Not Recovered/Not Resolved]
